FAERS Safety Report 25254133 (Version 1)
Quarter: 2025Q2

REPORT INFORMATION
  Report Type: Spontaneous
  Country: GB (occurrence: GB)
  Receive Date: 20250430
  Receipt Date: 20250430
  Transmission Date: 20250717
  Serious: Yes (Other)
  Sender: MSN LABORATORIES PRIVATE LIMITED
  Company Number: GB-MHRA-TPP5696740C581080YC1744889992298

PATIENT

DRUGS (9)
  1. ATORVASTATIN [Suspect]
     Active Substance: ATORVASTATIN
     Indication: Hypercholesterolaemia
     Dosage: TAKE ONE DAILY TO LOWER CHOLESTEROL
     Route: 065
     Dates: start: 20240124
  2. AMLODIPINE [Concomitant]
     Active Substance: AMLODIPINE BESYLATE
     Indication: Ill-defined disorder
     Dosage: TAKE ONE DAILY TO LOWER BLOOD PRESSURE AND/OR P...
     Route: 065
     Dates: start: 20240124
  3. AMLODIPINE [Concomitant]
     Active Substance: AMLODIPINE BESYLATE
  4. ASPIRIN [Concomitant]
     Active Substance: ASPIRIN
     Indication: Ill-defined disorder
     Dosage: TAKE ONE DAILY TO PREVENT BLOOD CLOTS FORMING
     Route: 065
     Dates: start: 20240124
  5. ASPIRIN [Concomitant]
     Active Substance: ASPIRIN
  6. BISOPROLOL [Concomitant]
     Active Substance: BISOPROLOL
     Indication: Ill-defined disorder
     Dosage: TAKE ONE DAILY TO REDUCE HEART STRAIN/FAILURE O...
     Route: 065
     Dates: start: 20240124
  7. BISOPROLOL [Concomitant]
     Active Substance: BISOPROLOL
  8. NITROGLYCERIN [Concomitant]
     Active Substance: NITROGLYCERIN
     Indication: Ill-defined disorder
     Route: 060
     Dates: start: 20240124
  9. LANSOPRAZOLE [Concomitant]
     Active Substance: LANSOPRAZOLE
     Indication: Ill-defined disorder
     Dosage: TAKE ONE ONCE DAILY
     Route: 065
     Dates: start: 20240124

REACTIONS (2)
  - Erectile dysfunction [Recovered/Resolved]
  - Hot flush [Recovered/Resolved]
